FAERS Safety Report 12537825 (Version 1)
Quarter: 2016Q3

REPORT INFORMATION
  Report Type: Spontaneous
  Country: US (occurrence: US)
  Receive Date: 20160707
  Receipt Date: 20160707
  Transmission Date: 20161109
  Serious: Yes (Hospitalization)
  Sender: FDA-Public Use
  Company Number: US-DSJP-DSU-2015-117860

PATIENT
  Sex: Male
  Weight: 136.5 kg

DRUGS (2)
  1. BENICAR HCT [Suspect]
     Active Substance: HYDROCHLOROTHIAZIDE\OLMESARTAN MEDOXOMIL
     Indication: HYPERTENSION
     Dosage: 40/25 MG, QD
     Route: 048
     Dates: start: 2006, end: 2014
  2. BYSTOLIC [Concomitant]
     Active Substance: NEBIVOLOL HYDROCHLORIDE
     Indication: PRODUCT USED FOR UNKNOWN INDICATION
     Dosage: 20 MG, UNK
     Dates: start: 2012

REACTIONS (5)
  - Dyspepsia [Unknown]
  - Constipation [Unknown]
  - Acute kidney injury [Unknown]
  - Abnormal faeces [Unknown]
  - Malabsorption [Unknown]

NARRATIVE: CASE EVENT DATE: 2013
